FAERS Safety Report 7027891-2 (Version None)
Quarter: 2010Q4

REPORT INFORMATION
  Report Type: 
  Country: None (occurrence: None)
  Receive Date: 20101005
  Receipt Date: 20100927
  Transmission Date: 20110411
  Serious: No
  Sender: FDA-Public Use
  Company Number: US-BIOGENIDEC-2010BI033856

PATIENT
  Sex: Female

DRUGS (2)
  1. TYSABRI [Suspect]
     Indication: MULTIPLE SCLEROSIS
     Route: 042
     Dates: start: 20090608, end: 20091201
  2. TYSABRI [Suspect]
     Route: 042
     Dates: start: 20100125

REACTIONS (3)
  - BALANCE DISORDER [None]
  - CRYING [None]
  - EMOTIONAL DISORDER [None]
